FAERS Safety Report 10433965 (Version 2)
Quarter: 2014Q3

REPORT INFORMATION
  Report Type: Report from Study
  Country: FR (occurrence: FR)
  Receive Date: 20140905
  Receipt Date: 20140910
  Transmission Date: 20150326
  Serious: Yes (Hospitalization)
  Sender: FDA-Public Use
  Company Number: FR-009507513-1408FRA016363

PATIENT
  Age: 70 Year
  Sex: Female
  Weight: 157 kg

DRUGS (22)
  1. SECTRAL [Concomitant]
     Active Substance: ACEBUTOLOL HYDROCHLORIDE
     Indication: HYPERTENSION
     Dosage: 200 MG
     Dates: start: 2013
  2. AUGMENTIN [Concomitant]
     Active Substance: AMOXICILLIN\CLAVULANATE POTASSIUM
     Indication: PRODUCTIVE COUGH
     Dosage: 3 GM, TID
     Dates: start: 20140624, end: 20140701
  3. VOGALENE [Concomitant]
     Active Substance: METOPIMAZINE
     Indication: PROPHYLAXIS OF NAUSEA AND VOMITING
     Dosage: 7.5 MG, PRN
     Dates: start: 20140702
  4. TEMOZOLOMIDE [Suspect]
     Active Substance: TEMOZOLOMIDE
     Dosage: 200 MG/M2, QD
     Route: 048
     Dates: start: 20140116, end: 20140706
  5. ASPEGIC [Concomitant]
     Active Substance: ASPIRIN DL-LYSINE
     Indication: CAROTID ARTERY STENOSIS
     Dosage: 500 MG, QD
     Dates: start: 2013
  6. INIPOMP [Concomitant]
     Active Substance: PANTOPRAZOLE SODIUM
     Indication: GASTROOESOPHAGEAL REFLUX PROPHYLAXIS
     Dosage: 20 MG, QD
     Dates: start: 2013
  7. OXYNORM [Concomitant]
     Active Substance: OXYCODONE HYDROCHLORIDE
     Indication: MUSCULOSKELETAL PAIN
     Dosage: 5 MG, PRN
     Dates: start: 20131212
  8. GLUCOPHAGE [Concomitant]
     Active Substance: METFORMIN HYDROCHLORIDE
     Indication: DIABETES MELLITUS
     Dosage: UNK
     Dates: start: 2013
  9. NOVO-NORM [Concomitant]
     Active Substance: REPAGLINIDE
     Indication: DIABETES MELLITUS
     Dosage: UNK
     Dates: start: 2013
  10. VELIPARIB [Suspect]
     Active Substance: VELIPARIB
     Indication: BREAST CANCER METASTATIC
     Dosage: 40 MG, BID,
     Route: 048
     Dates: start: 20131218, end: 20140708
  11. IKOREL [Concomitant]
     Active Substance: NICORANDIL
     Indication: CAROTID ARTERY STENOSIS
     Dosage: 10 MG, BID
     Dates: start: 2013
  12. LESCOL [Concomitant]
     Active Substance: FLUVASTATIN SODIUM
     Indication: BLOOD CHOLESTEROL ABNORMAL
     Dosage: 80 MG, QD
     Dates: start: 2013
  13. ZOPHREN (ONDANSETRON) [Concomitant]
     Active Substance: ONDANSETRON
     Indication: PREMEDICATION
     Dosage: 8 MG, PRN
     Dates: start: 20131218
  14. TEMOZOLOMIDE [Suspect]
     Active Substance: TEMOZOLOMIDE
     Indication: BREAST CANCER METASTATIC
     Dosage: 150 MG/M2, QD
     Route: 048
     Dates: start: 20131218, end: 20131222
  15. DAFALGAN CODEINE [Concomitant]
     Active Substance: ACETAMINOPHEN\CODEINE PHOSPHATE
     Indication: MUSCULOSKELETAL PAIN
     Dosage: 500 MG, PRN
     Dates: start: 20131206
  16. DAFALGAN CODEINE [Concomitant]
     Active Substance: ACETAMINOPHEN\CODEINE PHOSPHATE
     Indication: BONE PAIN
  17. OXYNORM [Concomitant]
     Active Substance: OXYCODONE HYDROCHLORIDE
     Indication: BONE PAIN
  18. PRIMPERAN [Concomitant]
     Active Substance: METOCLOPRAMIDE HYDROCHLORIDE
     Indication: NAUSEA
     Dosage: 10 MG, PRN
     Dates: start: 20131218
  19. CETYLPYRIDINIUM CHLORIDE (+) SODIUM FLUORIDE [Concomitant]
     Indication: PROPHYLAXIS
     Dosage: UNK, PRN
     Route: 061
     Dates: start: 20140205
  20. CYANOCOBALAMIN. [Concomitant]
     Active Substance: CYANOCOBALAMIN
     Indication: ANAEMIA
     Dosage: 1 INJECTION, 1 IN 1 M
     Dates: start: 20140117
  21. LEVOTHYROX [Concomitant]
     Active Substance: LEVOTHYROXINE
     Indication: HYPOTHYROIDISM
     Dosage: 75 MG, QD
     Dates: start: 2013
  22. FORLAX [Concomitant]
     Active Substance: POLYETHYLENE GLYCOL 4000
     Indication: CONSTIPATION
     Dosage: 1 BAG, PRN
     Dates: start: 20131212

REACTIONS (3)
  - Metastases to lymph nodes [Unknown]
  - Abdominal pain [Unknown]
  - Metastases to liver [Unknown]

NARRATIVE: CASE EVENT DATE: 20140731
